FAERS Safety Report 8221383-0 (Version None)
Quarter: 2012Q1

REPORT INFORMATION
  Report Type: 
  Country: None (occurrence: None)
  Receive Date: 20120320
  Receipt Date: 20120317
  Transmission Date: 20120608
  Serious: Yes (Death)
  Sender: FDA-Public Use
  Company Number: PHHY2012GT023767

PATIENT
  Age: 82 Year
  Sex: Female

DRUGS (1)
  1. DIOVAN HCT [Suspect]
     Dosage: VALSARTAN 320MG AND HYDROCHLOROTHIAZIDE 25MG

REACTIONS (1)
  - NEOPLASM MALIGNANT [None]
